FAERS Safety Report 6415658-5 (Version None)
Quarter: 2009Q4

REPORT INFORMATION
  Report Type: 
  Country: None (occurrence: None)
  Receive Date: 20091027
  Receipt Date: 20091020
  Transmission Date: 20100525
  Serious: Yes (Hospitalization)
  Sender: FDA-Public Use
  Company Number: BR-AVENTIS-200921970GDDC

PATIENT
  Age: 53 Year
  Sex: Male
  Weight: 70 kg

DRUGS (3)
  1. APIDRA [Suspect]
     Dosage: DOSE: ACC TO GLYCEMIA
     Route: 058
  2. LANTUS [Suspect]
     Route: 058
     Dates: start: 20070101
  3. METFORMIN HCL [Concomitant]
     Route: 048

REACTIONS (2)
  - SCAR [None]
  - WEIGHT DECREASED [None]
